FAERS Safety Report 9702511 (Version 1)
Quarter: 2013Q4

REPORT INFORMATION
  Report Type: Spontaneous
  Country: CH (occurrence: CH)
  Receive Date: 20131121
  Receipt Date: 20131121
  Transmission Date: 20140711
  Serious: Yes (Hospitalization)
  Sender: FDA-Public Use
  Company Number: CH-ASTRAZENECA-2013SE84067

PATIENT
  Age: 59 Year
  Sex: Female

DRUGS (11)
  1. SEROQUEL XR [Suspect]
     Indication: ANXIETY DISORDER
     Route: 048
     Dates: end: 201306
  2. SEROQUEL XR [Interacting]
     Indication: ANXIETY DISORDER
     Route: 048
     Dates: start: 20130606
  3. ANAFRANIL SR [Interacting]
     Indication: OBSESSIVE-COMPULSIVE DISORDER
     Route: 048
     Dates: start: 20130613
  4. TRAMAL RETARD [Interacting]
     Indication: BACK DISORDER
     Route: 048
  5. TILUR RETARD [Interacting]
     Indication: BACK DISORDER
     Route: 048
  6. ANXIOLIT [Concomitant]
     Indication: ANXIETY DISORDER
     Route: 048
     Dates: start: 20130612
  7. ANXIOLIT [Concomitant]
     Indication: ANXIETY DISORDER
     Dosage: TWICE A DAY IN RESERVE
     Route: 048
  8. CITALOPRAM [Concomitant]
  9. TRANXILIUM [Concomitant]
  10. XANAX [Concomitant]
     Dosage: 0.5 MG UP TO SIX TIMES PER DAY
  11. ZOLPIDEM [Concomitant]

REACTIONS (3)
  - Drug interaction [Unknown]
  - Toxic encephalopathy [Not Recovered/Not Resolved]
  - Epilepsy [Recovered/Resolved]
